FAERS Safety Report 4335521-3 (Version None)
Quarter: 2004Q2

REPORT INFORMATION
  Report Type: 
  Country: None (occurrence: None)
  Receive Date: 20040406
  Receipt Date: 20040312
  Transmission Date: 20050107
  Serious: No
  Sender: FDA-Public Use
  Company Number: 04H-163-0255560-00

PATIENT

DRUGS (2)
  1. ANTICOAGULANT CITRATE PHOSPHATE DEXTROSE SOLUTION, USP (ANTICOAGULANT [Suspect]
     Dosage: NOT REPORTED, NOT REPORTED,
     Dates: start: 20040101
  2. THAM SOLUTION, 500ML GLASS CONTAINER (TROMETHAMINE INJECTION) (TROMETH [Suspect]
     Dosage: NOT REPORTED, NOT REPORTED
     Dates: start: 20040101

REACTIONS (2)
  - POST PROCEDURAL COMPLICATION [None]
  - RIGHT VENTRICULAR FAILURE [None]
